FAERS Safety Report 9491933 (Version 1)
Quarter: 2013Q3

REPORT INFORMATION
  Report Type: Spontaneous
  Country: ES (occurrence: None)
  Receive Date: 20130827
  Receipt Date: 20130827
  Transmission Date: 20140515
  Serious: Yes (Life-Threatening, Hospitalization)
  Sender: FDA-Public Use
  Company Number: ES-OR-12P1048540

PATIENT
  Age: 18 Year
  Sex: Female

DRUGS (1)
  1. TAMBOCOR [Suspect]
     Indication: SUICIDE ATTEMPT
     Dosage: 1 IN 1 TOTAL

REACTIONS (8)
  - Suicide attempt [None]
  - Hypotension [None]
  - Somnolence [None]
  - Electrocardiogram QRS complex prolonged [None]
  - Bundle branch block right [None]
  - Electrocardiogram QT prolonged [None]
  - Poisoning [None]
  - Incorrect dose administered [None]
